FAERS Safety Report 10480151 (Version 2)
Quarter: 2014Q4

REPORT INFORMATION
  Report Type: Spontaneous
  Country: US (occurrence: US)
  Receive Date: 20140929
  Receipt Date: 20141017
  Transmission Date: 20150528
  Serious: Yes (Hospitalization)
  Sender: FDA-Public Use
  Company Number: US-BIOGENIDEC-2014BI098661

PATIENT
  Age: 71 Year
  Sex: Female

DRUGS (1)
  1. AVONEX [Suspect]
     Active Substance: INTERFERON BETA-1A
     Indication: MULTIPLE SCLEROSIS
     Route: 030
     Dates: start: 20120709

REACTIONS (8)
  - Diabetes mellitus [Not Recovered/Not Resolved]
  - Asthma [Unknown]
  - Cardiomyopathy [Not Recovered/Not Resolved]
  - Fear [Recovered/Resolved]
  - Hypertension [Unknown]
  - Multiple sclerosis relapse [Not Recovered/Not Resolved]
  - Chronic obstructive pulmonary disease [Unknown]
  - Atrial fibrillation [Not Recovered/Not Resolved]

NARRATIVE: CASE EVENT DATE: 20141009
